FAERS Safety Report 19188010 (Version 1)
Quarter: 2021Q2

REPORT INFORMATION
  Report Type: Spontaneous
  Country: IN (occurrence: IN)
  Receive Date: 20210428
  Receipt Date: 20210428
  Transmission Date: 20210717
  Serious: No
  Sender: FDA-Public Use
  Company Number: IN-LUPIN LIMITED-2021-05130

PATIENT
  Sex: Male

DRUGS (2)
  1. PEGALUP ORAL SOLUT. 200 ML [Suspect]
     Active Substance: POLYETHYLENE GLYCOL 3350\POTASSIUM CHLORIDE\SODIUM BICARBONATE\SODIUM CHLORIDE
     Indication: CONSTIPATION
     Dosage: 25 MILLIGRAM, QD (25 ML OF PEGALUP SYRUP IN 100 ML OF WATER TWICE A DAY (IN A DIVIDED DOSES))
     Route: 048
  2. PEGALUP ORAL SOLUT. 200 ML [Suspect]
     Active Substance: POLYETHYLENE GLYCOL 3350\POTASSIUM CHLORIDE\SODIUM BICARBONATE\SODIUM CHLORIDE
     Dosage: 25 MILLILITER, BID
     Route: 048

REACTIONS (2)
  - Incorrect dose administered [Unknown]
  - Drug ineffective [Unknown]
